FAERS Safety Report 25009379 (Version 3)
Quarter: 2025Q2

REPORT INFORMATION
  Report Type: Spontaneous
  Country: US (occurrence: US)
  Receive Date: 20250225
  Receipt Date: 20250602
  Transmission Date: 20250717
  Serious: Yes (Hospitalization)
  Sender: PFIZER
  Company Number: US-PFIZER INC-PV202500021401

PATIENT
  Age: 95 Year
  Sex: Female

DRUGS (3)
  1. XELJANZ XR [Suspect]
     Active Substance: TOFACITINIB CITRATE
     Indication: Rheumatoid arthritis
     Dosage: 11 MG, DAILY
     Route: 048
  2. XELJANZ XR [Suspect]
     Active Substance: TOFACITINIB CITRATE
     Dosage: 11 MG, DAILY
     Route: 048
     Dates: start: 201001
  3. XELJANZ XR [Suspect]
     Active Substance: TOFACITINIB CITRATE
     Dosage: 11 MG, DAILY
     Route: 048
     Dates: start: 201505

REACTIONS (13)
  - Fall [Unknown]
  - Dysstasia [Recovered/Resolved]
  - Arthralgia [Unknown]
  - Joint lock [Unknown]
  - Groin pain [Unknown]
  - Weight bearing difficulty [Unknown]
  - Influenza [Not Recovered/Not Resolved]
  - Nosocomial infection [Not Recovered/Not Resolved]
  - Back pain [Unknown]
  - Arthralgia [Unknown]
  - Muscular weakness [Unknown]
  - Asthenia [Unknown]
  - Fine motor skill dysfunction [Unknown]

NARRATIVE: CASE EVENT DATE: 20250301
